FAERS Safety Report 9100153 (Version 1)
Quarter: 2013Q1

REPORT INFORMATION
  Report Type: Spontaneous
  Country: US (occurrence: US)
  Receive Date: 20130215
  Receipt Date: 20130215
  Transmission Date: 20140127
  Serious: No
  Sender: FDA-Public Use
  Company Number: US-PFIZER INC-2013030239

PATIENT
  Age: 73 Year
  Sex: Female
  Weight: 77.1 kg

DRUGS (5)
  1. TOVIAZ [Suspect]
     Indication: HYPERTONIC BLADDER
     Dosage: 8 MG, DAILY IN THE MORNING AT 10 AM
     Dates: start: 201212
  2. LUMIGAN [Concomitant]
     Indication: OPEN ANGLE GLAUCOMA
     Dosage: ONE DROP IN EACH EYE DAILY
  3. MAXZIDE [Concomitant]
     Indication: THROMBOSIS
     Dosage: 25 MG, DAILY
     Dates: start: 2011
  4. MAXZIDE [Concomitant]
     Indication: OEDEMA PERIPHERAL
     Dosage: 50 MG, DAILY
  5. MAXZIDE [Concomitant]
     Dosage: 25 MG, DAILY
     Dates: start: 201301

REACTIONS (1)
  - Drug ineffective [Unknown]
